FAERS Safety Report 10040831 (Version 1)
Quarter: 2014Q1

REPORT INFORMATION
  Report Type: Spontaneous
  Country: CA (occurrence: CA)
  Receive Date: 20140327
  Receipt Date: 20140327
  Transmission Date: 20141002
  Serious: Yes (Death, Other)
  Sender: FDA-Public Use
  Company Number: CA-JNJFOC-20140308935

PATIENT
  Sex: 0

DRUGS (7)
  1. DOXORUBICIN HYDROCHLORIDE [Suspect]
     Indication: DIFFUSE LARGE B-CELL LYMPHOMA
     Route: 042
  2. CYCLOPHOSPHAMIDE [Suspect]
     Indication: DIFFUSE LARGE B-CELL LYMPHOMA
     Route: 065
  3. VINCRISTINE [Suspect]
     Indication: DIFFUSE LARGE B-CELL LYMPHOMA
     Route: 065
  4. PREDNISONE [Suspect]
     Indication: DIFFUSE LARGE B-CELL LYMPHOMA
     Route: 065
  5. RITUXIMAB [Suspect]
     Indication: DIFFUSE LARGE B-CELL LYMPHOMA
     Route: 065
  6. RADIOTHERAPY [Suspect]
     Indication: DIFFUSE LARGE B-CELL LYMPHOMA
     Route: 065
  7. ETOPOSIDE [Suspect]
     Indication: CARDIOTOXICITY
     Route: 065

REACTIONS (15)
  - Sepsis [Fatal]
  - Disease progression [Fatal]
  - Infection [Fatal]
  - Pneumonia bacterial [Fatal]
  - Hepatorenal syndrome [Fatal]
  - Hepatic cirrhosis [Fatal]
  - Hepatic encephalopathy [Fatal]
  - Subdural haematoma [Fatal]
  - Pulmonary haemorrhage [Fatal]
  - Pneumonia [Unknown]
  - Drug effect decreased [Unknown]
  - Lung disorder [Unknown]
  - Neuropathy peripheral [Unknown]
  - Encephalopathy [Unknown]
  - Drug tolerance decreased [Unknown]
